FAERS Safety Report 5911890-5 (Version None)
Quarter: 2008Q4

REPORT INFORMATION
  Report Type: 
  Country: None (occurrence: None)
  Receive Date: 20081003
  Receipt Date: 20080922
  Transmission Date: 20090506
  Serious: Yes (Hospitalization)
  Sender: FDA-Public Use
  Company Number: 2007BI016046

PATIENT
  Age: 56 Year
  Sex: Female

DRUGS (14)
  1. AVONEX [Suspect]
     Indication: RELAPSING-REMITTING MULTIPLE SCLEROSIS
     Dosage: 15 UG;QW;IM; 20 UG;QW;IM; 15 UG;QW;IM
     Route: 030
     Dates: start: 20070626, end: 20070702
  2. AVONEX [Suspect]
     Indication: RELAPSING-REMITTING MULTIPLE SCLEROSIS
     Dosage: 15 UG;QW;IM; 20 UG;QW;IM; 15 UG;QW;IM
     Route: 030
     Dates: start: 20070703, end: 20070703
  3. AVONEX [Suspect]
     Indication: RELAPSING-REMITTING MULTIPLE SCLEROSIS
     Dosage: 15 UG;QW;IM; 20 UG;QW;IM; 15 UG;QW;IM
     Route: 030
     Dates: start: 20070710
  4. TERNELIN (CON.) [Concomitant]
  5. METHYCOBAL (CON.) [Concomitant]
  6. MOBIC (CON.) [Concomitant]
  7. MEVALOTIN (CON.) [Concomitant]
  8. DEPAKENE-R (CON.) [Concomitant]
  9. LANDSEN (CON.) [Concomitant]
  10. SELBEX (CON.) [Concomitant]
  11. MAGMITT (CON.) [Concomitant]
  12. GABAPEN (CON.) [Concomitant]
  13. LOXONIN (CON.) [Concomitant]
  14. MUCOSTA (CON.) [Concomitant]

REACTIONS (10)
  - ANAEMIA [None]
  - BLOOD ALBUMIN DECREASED [None]
  - DEPRESSIVE SYMPTOM [None]
  - GASTRIC ULCER [None]
  - HEADACHE [None]
  - HYPERLIPIDAEMIA [None]
  - HYPOPROTEINAEMIA [None]
  - MULTIPLE SCLEROSIS RELAPSE [None]
  - PROTEIN TOTAL DECREASED [None]
  - PYREXIA [None]
